FAERS Safety Report 22314127 (Version 1)
Quarter: 2023Q2

REPORT INFORMATION
  Report Type: Spontaneous
  Country: GR (occurrence: GR)
  Receive Date: 20230512
  Receipt Date: 20230512
  Transmission Date: 20230721
  Serious: Yes (Death, Hospitalization, Other)
  Sender: FDA-Public Use
  Company Number: GR-FDC-2023GRLIT00313

PATIENT
  Age: 46 Year
  Sex: Male

DRUGS (2)
  1. CIPROFLOXACIN [Suspect]
     Active Substance: CIPROFLOXACIN
     Indication: Brucellosis
     Route: 065
  2. DOXYCYCLINE [Suspect]
     Active Substance: DOXYCYCLINE
     Indication: Brucellosis
     Route: 065

REACTIONS (4)
  - Hepatotoxicity [Fatal]
  - Disseminated intravascular coagulation [Fatal]
  - Hepatic encephalopathy [Fatal]
  - Haemorrhage intracranial [Fatal]
